FAERS Safety Report 22645962 (Version 1)
Quarter: 2023Q2

REPORT INFORMATION
  Report Type: Spontaneous
  Country: US (occurrence: None)
  Receive Date: 20230626
  Receipt Date: 20230626
  Transmission Date: 20230722
  Serious: Yes (Disabling)
  Sender: FDA-Public Use
  Company Number: None

PATIENT
  Age: 57 Year
  Sex: Female
  Weight: 56.7 kg

DRUGS (4)
  1. LEVOFLOXACIN [Suspect]
     Active Substance: LEVOFLOXACIN
     Indication: Sinusitis
     Dosage: FREQUENCY : AT BEDTIME;?
     Route: 048
     Dates: start: 20230605, end: 20230607
  2. LEVOFLOXACIN [Suspect]
     Active Substance: LEVOFLOXACIN
     Indication: Upper respiratory tract infection
  3. VITAMIN D [Concomitant]
     Active Substance: VITAMIN D NOS
  4. Vitamin B 12 magnesium [Concomitant]

REACTIONS (26)
  - Headache [None]
  - Dizziness [None]
  - Arthralgia [None]
  - Arthralgia [None]
  - Vision blurred [None]
  - Insomnia [None]
  - Joint noise [None]
  - Paraesthesia [None]
  - Hypoaesthesia [None]
  - Neck pain [None]
  - Gait disturbance [None]
  - Chest pain [None]
  - Diarrhoea [None]
  - Faeces discoloured [None]
  - Asthenia [None]
  - Toothache [None]
  - Pain in jaw [None]
  - Burning sensation [None]
  - Nausea [None]
  - Arthralgia [None]
  - Muscle tightness [None]
  - Oral pain [None]
  - Glossodynia [None]
  - Pain [None]
  - Abdominal pain [None]
  - Eye pain [None]

NARRATIVE: CASE EVENT DATE: 20230605
